FAERS Safety Report 9142771 (Version 1)
Quarter: 2013Q1

REPORT INFORMATION
  Report Type: Spontaneous
  Country: US (occurrence: US)
  Receive Date: 20130306
  Receipt Date: 20130306
  Transmission Date: 20140127
  Serious: No
  Sender: FDA-Public Use
  Company Number: US-BAYER-2013-026048

PATIENT
  Age: 38 Year
  Sex: Female

DRUGS (4)
  1. MIRENA [Suspect]
     Indication: CONTRACEPTION
     Dosage: 20 MCG/24HR, CONT
     Route: 015
     Dates: start: 201203
  2. MIRENA [Suspect]
     Indication: MENORRHAGIA
  3. MIRENA [Suspect]
     Indication: DYSMENORRHOEA
  4. ACCUTANE [Concomitant]
     Indication: ACNE
     Dosage: UNK
     Dates: start: 201301

REACTIONS (5)
  - Fungal infection [None]
  - Vaginal discharge [None]
  - Acne [None]
  - Vaginal discharge [None]
  - Fungal infection [None]
